FAERS Safety Report 7458794-7 (Version None)
Quarter: 2011Q2

REPORT INFORMATION
  Report Type: 
  Country: None (occurrence: None)
  Receive Date: 20110504
  Receipt Date: 20110427
  Transmission Date: 20111010
  Serious: Yes (Other)
  Sender: FDA-Public Use
  Company Number: PHHY2011US36330

PATIENT
  Age: 57 Year
  Sex: Female

DRUGS (3)
  1. WARFARIN SODIUM [Suspect]
     Dosage: UNK UKN, UNK
  2. FONDAPARINUX SODIUM [Concomitant]
  3. HEPARIN [Suspect]
     Dosage: UNK UKN, UNK

REACTIONS (7)
  - HEMIPARESIS [None]
  - INTERNATIONAL NORMALISED RATIO INCREASED [None]
  - FALL [None]
  - COGNITIVE DISORDER [None]
  - ISCHAEMIC STROKE [None]
  - HEPARIN-INDUCED THROMBOCYTOPENIA [None]
  - DYSARTHRIA [None]
